FAERS Safety Report 16969044 (Version 2)
Quarter: 2019Q4

REPORT INFORMATION
  Report Type: Spontaneous
  Country: GB (occurrence: GB)
  Receive Date: 20191029
  Receipt Date: 20191111
  Transmission Date: 20200122
  Serious: Yes (Other)
  Sender: FDA-Public Use
  Company Number: GB-ROCHE-2445742

PATIENT
  Age: 29 Year
  Sex: Female

DRUGS (1)
  1. HERCEPTIN [Suspect]
     Active Substance: TRASTUZUMAB
     Indication: BREAST CANCER
     Route: 065

REACTIONS (10)
  - Neutropenic sepsis [Unknown]
  - Pulmonary thrombosis [Unknown]
  - Sepsis [Unknown]
  - Influenza like illness [Unknown]
  - Chronic fatigue syndrome [Unknown]
  - Anxiety [Unknown]
  - Mental disorder [Unknown]
  - Fatigue [Unknown]
  - Pain [Unknown]
  - Menopausal symptoms [Unknown]
